FAERS Safety Report 6276396-5 (Version None)
Quarter: 2009Q3

REPORT INFORMATION
  Report Type: 
  Country: None (occurrence: None)
  Receive Date: 20090717
  Receipt Date: 20081216
  Transmission Date: 20100115
  Serious: No
  Sender: FDA-Public Use
  Company Number: 125300

PATIENT
  Age: 27 Year
  Sex: Female
  Weight: 55.3388 kg

DRUGS (2)
  1. ONDANSETRON [Suspect]
     Indication: DRUG USE FOR UNKNOWN INDICATION
     Dosage: 4 MG, ONCE, INTRAVENOUS
     Route: 042
     Dates: start: 20081123, end: 20081123
  2. MORPHINE [Concomitant]

REACTIONS (1)
  - INJECTION SITE REACTION [None]
